FAERS Safety Report 5418005-0 (Version None)
Quarter: 2007Q3

REPORT INFORMATION
  Report Type: 
  Country: None (occurrence: None)
  Receive Date: 20070817
  Receipt Date: 20070809
  Transmission Date: 20080115
  Serious: No
  Sender: FDA-Public Use
  Company Number: A0666334A

PATIENT
  Age: 41 Year
  Sex: Female
  Weight: 100 kg

DRUGS (7)
  1. VERAMYST [Suspect]
     Dosage: 4SPR TWICE PER DAY
     Route: 045
     Dates: start: 20070701, end: 20070101
  2. OPTIVAR [Suspect]
     Indication: CONJUNCTIVITIS
  3. LISINOPRIL [Concomitant]
     Dosage: 20MG TWICE PER DAY
     Route: 048
  4. RYNATAN [Concomitant]
     Route: 048
  5. DIFLUNISAL [Concomitant]
     Route: 048
  6. SULFADINE [Concomitant]
     Dosage: 2500MG PER DAY
     Route: 048
  7. ASTELIN [Concomitant]
     Dosage: 4PUFF TWICE PER DAY
     Route: 045

REACTIONS (6)
  - ABNORMAL SENSATION IN EYE [None]
  - DRUG ADMINISTRATION ERROR [None]
  - EYE PAIN [None]
  - EYE SWELLING [None]
  - OVERDOSE [None]
  - VISION BLURRED [None]
